FAERS Safety Report 5283394-7 (Version None)
Quarter: 2007Q2

REPORT INFORMATION
  Report Type: 
  Country: None (occurrence: None)
  Receive Date: 20070402
  Receipt Date: 20070326
  Transmission Date: 20071010
  Serious: Yes (Life-Threatening, Disabling, Congenital Anomaly)
  Sender: FDA-Public Use
  Company Number: FR-AVENTIS-200711083FR

PATIENT
  Age: 1 Day
  Sex: Male
  Weight: 3.25 kg

DRUGS (3)
  1. LASILIX                            /00032601/ [Suspect]
     Indication: DRUG USE FOR UNKNOWN INDICATION
     Route: 064
  2. COZAAR [Suspect]
     Indication: CARDIOMYOPATHY
     Route: 048
  3. DIGOXIN [Suspect]
     Indication: DRUG USE FOR UNKNOWN INDICATION
     Route: 048

REACTIONS (7)
  - ANAL ATRESIA [None]
  - HEART DISEASE CONGENITAL [None]
  - MULTIPLE CONGENITAL ABNORMALITIES [None]
  - RENAL APLASIA [None]
  - SACRAL HYPOPLASIA [None]
  - URINOMA [None]
  - VENTRICULAR SEPTAL DEFECT [None]
